FAERS Safety Report 5869294-X (Version None)
Quarter: 2008Q3

REPORT INFORMATION
  Report Type: 
  Country: None (occurrence: None)
  Receive Date: 20080828
  Receipt Date: 20080814
  Transmission Date: 20090109
  Serious: Yes (Hospitalization)
  Sender: FDA-Public Use
  Company Number: WAES 0805USA05040

PATIENT
  Age: 78 Year
  Sex: Male
  Weight: 97.977 kg

DRUGS (46)
  1. CAP VORINOSTAT UNK [Suspect]
     Indication: ACUTE MYELOID LEUKAEMIA
     Dosage: 400 MG/DAILY/PO
     Route: 048
     Dates: start: 20080331, end: 20080413
  2. CAP VORINOSTAT UNK [Suspect]
     Indication: ACUTE MYELOID LEUKAEMIA
     Dosage: 400 MG/DAILY/PO
     Route: 048
     Dates: start: 20080430, end: 20080513
  3. CAP VORINOSTAT UNK [Suspect]
     Indication: ACUTE MYELOID LEUKAEMIA
     Dosage: 400 MG/DAILY/PO
     Route: 048
     Dates: start: 20080528, end: 20080610
  4. CAP VORINOSTAT UNK [Suspect]
     Indication: ACUTE MYELOID LEUKAEMIA
     Dosage: 400 MG/DAILY/PO
     Route: 048
     Dates: start: 20080702, end: 20080715
  5. DECITABINE UNK [Suspect]
     Indication: ACUTE MYELOID LEUKAEMIA
     Dosage: 45 MG/IV, 45.4 MG/IV, 44.8 MG/IV, 20 MG/M[2]/DAILY/IV
     Route: 042
     Dates: start: 20080331, end: 20080404
  6. DECITABINE UNK [Suspect]
     Indication: ACUTE MYELOID LEUKAEMIA
     Dosage: 45 MG/IV, 45.4 MG/IV, 44.8 MG/IV, 20 MG/M[2]/DAILY/IV
     Route: 042
     Dates: start: 20080430, end: 20080504
  7. DECITABINE UNK [Suspect]
     Indication: ACUTE MYELOID LEUKAEMIA
     Dosage: 45 MG/IV, 45.4 MG/IV, 44.8 MG/IV, 20 MG/M[2]/DAILY/IV
     Route: 042
     Dates: start: 20080528, end: 20080601
  8. DECITABINE UNK [Suspect]
     Indication: ACUTE MYELOID LEUKAEMIA
     Dosage: 45 MG/IV, 45.4 MG/IV, 44.8 MG/IV, 20 MG/M[2]/DAILY/IV
     Route: 042
     Dates: start: 20080702, end: 20080703
  9. DECITABINE UNK [Suspect]
     Indication: ACUTE MYELOID LEUKAEMIA
     Dosage: 45 MG/IV, 45.4 MG/IV, 44.8 MG/IV, 20 MG/M[2]/DAILY/IV
     Route: 042
     Dates: start: 20080705, end: 20080707
  10. BACTRIM DS [Concomitant]
  11. COLACE [Concomitant]
  12. FLOMAX (MORNIFLUMATE) [Concomitant]
  13. LASIX [Concomitant]
  14. LOTENSIN [Concomitant]
  15. LOVENOX [Concomitant]
  16. LOVENOX [Concomitant]
  17. LOVENOX [Concomitant]
  18. NORVASC [Concomitant]
  19. PRINIVIL [Concomitant]
  20. PROTONIX [Concomitant]
  21. [THERAPY UNSPECIFIED] [Concomitant]
  22. ACETAMINOPHEN [Concomitant]
  23. ACYCLOVIR [Concomitant]
  24. ALLOPURINOL [Concomitant]
  25. ALLOPURINOL [Concomitant]
  26. CHLORHEXIDINE GLUCONATE [Concomitant]
  27. CLINDAMYCIN HCL [Concomitant]
  28. DIGOXIN [Concomitant]
  29. DIPHENHYDRAMINE HYDROCHLORIDE [Concomitant]
  30. HEPARIN [Concomitant]
  31. INSULIN [Concomitant]
  32. LINEZOLID [Concomitant]
  33. LORAZEPAM [Concomitant]
  34. MAGNESIUM SULFATE [Concomitant]
  35. METFORMIN HCL [Concomitant]
  36. MORPHINE [Concomitant]
  37. MORPHINE [Concomitant]
  38. MOXIFLOXACIN HYDROCHLORIDE [Concomitant]
  39. NYSTATIN [Concomitant]
  40. OXYCODONE HCL [Concomitant]
  41. PIPERACILLIN [Concomitant]
  42. POTASSIUM CHLORIDE [Concomitant]
  43. TECHNETIUM TC 99M MEDRONATE [Concomitant]
  44. VANCOMYCIN HYDROCHLORIDE [Concomitant]
  45. ZOLPIDEM TARTRATE [Concomitant]
  46. ZOLPIDEM TARTRATE [Concomitant]

REACTIONS (26)
  - ASTHENIA [None]
  - BACTERIAL INFECTION [None]
  - CARDIAC FAILURE CONGESTIVE [None]
  - CARDIOMEGALY [None]
  - CELLULITIS [None]
  - CULTURE URINE POSITIVE [None]
  - CULTURE WOUND POSITIVE [None]
  - ENTEROCOCCAL INFECTION [None]
  - EPIDIDYMITIS [None]
  - FEBRILE NEUTROPENIA [None]
  - FURUNCLE [None]
  - HYPERBILIRUBINAEMIA [None]
  - HYPERGLYCAEMIA [None]
  - HYPERTENSION [None]
  - LEFT VENTRICULAR END-DIASTOLIC PRESSURE INCREASED [None]
  - LUNG DISORDER [None]
  - MASTOIDITIS [None]
  - MYOCARDIAL INFARCTION [None]
  - NAUSEA [None]
  - PLEURAL EFFUSION [None]
  - PNEUMONIA [None]
  - PYREXIA [None]
  - RASH PUSTULAR [None]
  - STAPHYLOCOCCAL INFECTION [None]
  - TENDERNESS [None]
  - VOMITING [None]
